FAERS Safety Report 6086878-7 (Version None)
Quarter: 2009Q1

REPORT INFORMATION
  Report Type: 
  Country: None (occurrence: None)
  Receive Date: 20090219
  Receipt Date: 20090206
  Transmission Date: 20090719
  Serious: Yes (Death)
  Sender: FDA-Public Use
  Company Number: 09-000214

PATIENT
  Age: 24 Year
  Sex: Male

DRUGS (4)
  1. DURICEF [Suspect]
     Dosage: ORAL
     Route: 048
  2. CLONAZEPAM [Suspect]
     Dosage: ORAL
  3. BENZODIAZEPINE DERIVATIVES () [Suspect]
  4. DOXEPIN HCL [Suspect]
     Dosage: ORAL

REACTIONS (1)
  - DRUG ABUSE [None]
